FAERS Safety Report 11849385 (Version 1)
Quarter: 2015Q4

REPORT INFORMATION
  Report Type: Spontaneous
  Country: US (occurrence: None)
  Receive Date: 20151217
  Receipt Date: 20151217
  Transmission Date: 20160305
  Serious: Yes (Disabling, Other)
  Sender: FDA-Public Use
  Company Number: None

PATIENT
  Age: 64 Year
  Sex: Female
  Weight: 49.9 kg

DRUGS (3)
  1. ATORVASTATIN 10 MG TABLETS [Suspect]
     Active Substance: ATORVASTATIN
     Indication: BLOOD CHOLESTEROL
     Dosage: 1 PILL DAILY ONCE ORALLY
     Route: 048
     Dates: start: 20151027, end: 20151107
  2. DIAZAPAM 10 MG GEL [Concomitant]
     Active Substance: DIAZEPAM
  3. RANITIDINE [Concomitant]
     Active Substance: RANITIDINE\RANITIDINE HYDROCHLORIDE

REACTIONS (8)
  - Tremor [None]
  - Pollakiuria [None]
  - Haemorrhage [None]
  - Impaired driving ability [None]
  - Muscular weakness [None]
  - Hypersomnia [None]
  - Dyspnoea [None]
  - Pain in extremity [None]

NARRATIVE: CASE EVENT DATE: 20151030
